FAERS Safety Report 9674655 (Version 3)
Quarter: 2015Q3

REPORT INFORMATION
  Report Type: Spontaneous
  Country: US (occurrence: US)
  Receive Date: 20131107
  Receipt Date: 20150720
  Transmission Date: 20151125
  Serious: Yes (Hospitalization, Other)
  Sender: FDA-Public Use
  Company Number: US-BAYER-2013-133310

PATIENT
  Age: 23 Year
  Sex: Female

DRUGS (8)
  1. CLARITIN-D 12 HOUR [Concomitant]
     Active Substance: LORATADINE\PSEUDOEPHEDRINE SULFATE
  2. MANNITOL. [Concomitant]
     Active Substance: MANNITOL
  3. KEPPRA [Concomitant]
     Active Substance: LEVETIRACETAM
     Dosage: 750 MG, BID
  4. YASMIN [Suspect]
     Active Substance: DROSPIRENONE\ETHINYL ESTRADIOL
     Indication: CONTRACEPTION
     Dosage: UNK
     Dates: start: 20050701, end: 20050729
  5. DILANTIN [Concomitant]
     Active Substance: PHENYTOIN
     Indication: SEIZURE
  6. VITAMIN C [ASCORBIC ACID] [Concomitant]
     Dosage: UNK
     Dates: start: 2010
  7. ALBUTEROL. [Concomitant]
     Active Substance: ALBUTEROL
     Dosage: UNK
     Dates: start: 1985
  8. DEXAMETHASONE. [Concomitant]
     Active Substance: DEXAMETHASONE

REACTIONS (26)
  - Cerebral venous thrombosis [None]
  - Thrombotic stroke [None]
  - General physical health deterioration [None]
  - Emotional distress [None]
  - Speech disorder [None]
  - Reading disorder [None]
  - Learning disorder [None]
  - Generalised tonic-clonic seizure [None]
  - Agraphia [None]
  - Loss of consciousness [None]
  - Fall [None]
  - Aphasia [None]
  - Haemorrhage intracranial [None]
  - Dyscalculia [None]
  - Intracranial venous sinus thrombosis [None]
  - Brain oedema [None]
  - Thrombophlebitis superficial [None]
  - Injury [None]
  - Pain [None]
  - Altered state of consciousness [None]
  - Deep vein thrombosis [None]
  - Apraxia [None]
  - Headache [None]
  - Fear of disease [None]
  - Depressed mood [None]
  - Fear [None]

NARRATIVE: CASE EVENT DATE: 20050728
